FAERS Safety Report 4638036-8 (Version None)
Quarter: 2005Q2

REPORT INFORMATION
  Report Type: 
  Country: None (occurrence: None)
  Receive Date: 20050415
  Receipt Date: 20040709
  Transmission Date: 20051028
  Serious: Yes (Other)
  Sender: FDA-Public Use
  Company Number: 2004050473

PATIENT
  Age: 47 Year
  Sex: 0
  Weight: 80 kg

DRUGS (1)
  1. NICORETTE [Suspect]
     Indication: NICOTINE DEPENDENCE
     Dosage: 5 MG, TRNASDERMAL
     Route: 062
     Dates: start: 20010101, end: 20010101

REACTIONS (1)
  - AGGRESSION [None]
